FAERS Safety Report 19332224 (Version 2)
Quarter: 2021Q4

REPORT INFORMATION
  Report Type: Other
  Country: US (occurrence: US)
  Receive Date: 20210529
  Receipt Date: 20211018
  Transmission Date: 20220303
  Serious: Yes (Other)
  Sender: FDA-Public Use
  Company Number: US-ROCHE-2835255

PATIENT
  Age: 55 Year
  Sex: Female
  Weight: 55.84 kg

DRUGS (40)
  1. OCREVUS [Suspect]
     Active Substance: OCRELIZUMAB
     Indication: Relapsing-remitting multiple sclerosis
     Dosage: DOT: 27/JUL/2020 10/AUG/2020 15/FEB2021
     Route: 042
     Dates: start: 202008
  2. OCREVUS [Suspect]
     Active Substance: OCRELIZUMAB
     Route: 042
     Dates: start: 201812
  3. ACTIVASE [Suspect]
     Active Substance: ALTEPLASE
     Indication: Anaemia
     Dosage: GAVE DOUBLE DOSE AS ONE TIME DOSE/DOSES
     Route: 042
     Dates: start: 202101
  4. GAMMAGARD [Concomitant]
     Active Substance: HUMAN IMMUNOGLOBULIN G
     Indication: Hypogammaglobulinaemia
     Dates: start: 201712
  5. IRON [Concomitant]
     Active Substance: IRON
     Indication: Anaemia
  6. ELIQUIS [Concomitant]
     Active Substance: APIXABAN
     Indication: Thrombosis
     Route: 048
  7. ELIQUIS [Concomitant]
     Active Substance: APIXABAN
     Route: 048
     Dates: start: 202101
  8. LEVOTHYROXINE SODIUM [Concomitant]
     Active Substance: LEVOTHYROXINE SODIUM
     Indication: Hypothyroidism
     Route: 048
  9. LEVOTHYROXINE SODIUM [Concomitant]
     Active Substance: LEVOTHYROXINE SODIUM
     Dosage: STARTED AT 23 YEARS OLD
     Route: 048
  10. VITAMIN D3 [Concomitant]
     Active Substance: CHOLECALCIFEROL
     Indication: Osteoarthritis
     Route: 048
  11. VITAMIN D3 [Concomitant]
     Active Substance: CHOLECALCIFEROL
     Indication: Arthritis
     Route: 048
  12. FOLIC ACID [Concomitant]
     Active Substance: FOLIC ACID
     Indication: Folate deficiency
     Dosage: STARTED BEGINNING OF 2019
     Route: 048
     Dates: start: 2019
  13. FOLIC ACID [Concomitant]
     Active Substance: FOLIC ACID
     Indication: Anaemia
  14. ASPIRIN [Concomitant]
     Active Substance: ASPIRIN
     Route: 048
  15. PRAVASTATIN [Concomitant]
     Active Substance: PRAVASTATIN
     Indication: Blood cholesterol increased
     Route: 048
  16. FLUTICASONE [Concomitant]
     Active Substance: FLUTICASONE
     Indication: Hypersensitivity
     Dosage: 2 SPRAYS TWICE A DAY IN EACH NOSTRIL ;ONGOING: YES
     Route: 045
  17. SKELAXIN [Concomitant]
     Active Substance: METAXALONE
     Indication: Osteoarthritis
     Route: 048
  18. GABAPENTIN [Concomitant]
     Active Substance: GABAPENTIN
     Indication: Osteoarthritis
     Dosage: STARTED IN 2013 OR 2914 AND USUALLY FORGETS THE MIDDLE DOSE OF GABAPENTIN
     Route: 048
  19. GABAPENTIN [Concomitant]
     Active Substance: GABAPENTIN
     Indication: Neuropathy peripheral
  20. GABAPENTIN [Concomitant]
     Active Substance: GABAPENTIN
     Indication: Pain
  21. COLESTIPOL [Concomitant]
     Active Substance: COLESTIPOL
     Indication: Irritable bowel syndrome
     Dosage: 1 TAB EACH DAY AS NEEDED; STARTED 6 YEARS AGO ;ONGOING: YES
     Route: 048
  22. SUCRALFATE [Concomitant]
     Active Substance: SUCRALFATE
     Indication: Gastrooesophageal reflux disease
     Dosage: 1G CAPLET X 3 DISSOLVED BEFORE EACH MEAL + BEDTIME ;ONGOING: YES
     Route: 048
  23. OMEPRAZOLE [Concomitant]
     Active Substance: OMEPRAZOLE
     Indication: Hiatus hernia
     Route: 048
  24. OMEPRAZOLE [Concomitant]
     Active Substance: OMEPRAZOLE
     Indication: Abdominal pain upper
  25. LANSOPRAZOLE [Concomitant]
     Active Substance: LANSOPRAZOLE
     Indication: Gastrooesophageal reflux disease
     Route: 048
  26. CITALOPRAM [Concomitant]
     Active Substance: CITALOPRAM HYDROBROMIDE
     Route: 048
     Dates: start: 2014
  27. MECLIZINE [Concomitant]
     Active Substance: MECLIZINE HYDROCHLORIDE
     Indication: Meniere^s disease
     Dosage: CAN TAKE UP TO 2 TABS 3 TIMES PER DAY ;ONGOING: YES
     Route: 048
  28. MECLIZINE [Concomitant]
     Active Substance: MECLIZINE HYDROCHLORIDE
     Indication: Dizziness
  29. FLOVENT [Concomitant]
     Active Substance: FLUTICASONE PROPIONATE
     Indication: Asthma
  30. FLOVENT [Concomitant]
     Active Substance: FLUTICASONE PROPIONATE
     Indication: Chronic obstructive pulmonary disease
  31. PROAIR HFA [Concomitant]
     Active Substance: ALBUTEROL SULFATE
     Indication: Asthma
     Dosage: 2 PUFFS UP TO 4 TIMES/DAY ;ONGOING: YES
  32. PROAIR HFA [Concomitant]
     Active Substance: ALBUTEROL SULFATE
     Indication: Chronic obstructive pulmonary disease
  33. ATIVAN [Concomitant]
     Active Substance: LORAZEPAM
     Indication: Anxiety
     Route: 048
  34. COLESTIPOL HYDROCHLORIDE [Concomitant]
     Active Substance: COLESTIPOL HYDROCHLORIDE
     Indication: Diarrhoea
     Dosage: 3 TO 4 TIMES PER WEEK AS NEEDED
     Route: 048
     Dates: start: 2014
  35. SYMBICORT [Concomitant]
     Active Substance: BUDESONIDE\FORMOTEROL FUMARATE DIHYDRATE
     Indication: Chronic obstructive pulmonary disease
     Dosage: 160/4.5 DOSE, 2 PUFFS
     Route: 055
     Dates: start: 2015
  36. CETIRIZINE [Concomitant]
     Active Substance: CETIRIZINE HYDROCHLORIDE
     Indication: Hypersensitivity
     Dosage: START DATE 10 OR MORE YEARS AGO
     Route: 048
  37. CETIRIZINE [Concomitant]
     Active Substance: CETIRIZINE HYDROCHLORIDE
     Indication: Seasonal allergy
  38. CETIRIZINE [Concomitant]
     Active Substance: CETIRIZINE HYDROCHLORIDE
     Indication: Allergy to animal
  39. PRAVASTATIN [Concomitant]
     Active Substance: PRAVASTATIN
     Indication: Blood cholesterol increased
     Route: 048
     Dates: start: 2013
  40. INFED [Concomitant]
     Active Substance: IRON DEXTRAN
     Indication: Anaemia
     Dosage: STARTED 4 TO 5 YEARS AGOS
     Route: 042

REACTIONS (6)
  - Vena cava thrombosis [Unknown]
  - Sinusitis [Unknown]
  - Nasopharyngitis [Recovering/Resolving]
  - Fatigue [Recovered/Resolved]
  - Drug hypersensitivity [Recovered/Resolved]
  - Fibrin D dimer increased [Not Recovered/Not Resolved]

NARRATIVE: CASE EVENT DATE: 20210101
